FAERS Safety Report 6822207-6 (Version None)
Quarter: 2010Q3

REPORT INFORMATION
  Report Type: 
  Country: None (occurrence: None)
  Receive Date: 20100702
  Receipt Date: 20100623
  Transmission Date: 20110219
  Serious: Yes (Hospitalization)
  Sender: FDA-Public Use
  Company Number: 2010EU002916

PATIENT
  Age: 39 Year
  Sex: Male

DRUGS (7)
  1. TACROLIMUS [Suspect]
     Indication: POSTOPERATIVE CARE
     Dosage: 4 MG, BID, ORAL
     Route: 048
     Dates: start: 20081212
  2. TACROLIMUS [Suspect]
     Indication: RENAL TRANSPLANT
     Dosage: 4 MG, BID, ORAL
     Route: 048
     Dates: start: 20081212
  3. MYCOPHENOLIC ACID [Suspect]
     Indication: POSTOPERATIVE CARE
     Dosage: 1000 UG, BID, ORAL; 1 G, BID, ORAL
     Route: 048
     Dates: start: 20081212
  4. MYCOPHENOLIC ACID [Suspect]
     Indication: RENAL TRANSPLANT
     Dosage: 1000 UG, BID, ORAL; 1 G, BID, ORAL
     Route: 048
     Dates: start: 20081212
  5. BISOPROLOL FUMARATE [Concomitant]
  6. PREDNISOLONE [Concomitant]
  7. SODIUN VALPROATE (VALPROATE SODIUM) [Concomitant]

REACTIONS (1)
  - DIABETES MELLITUS [None]
